FAERS Safety Report 23028860 (Version 1)
Quarter: 2023Q4

REPORT INFORMATION
  Report Type: Spontaneous
  Country: DE (occurrence: DE)
  Receive Date: 20231004
  Receipt Date: 20231004
  Transmission Date: 20240109
  Serious: Yes (Disabling, Other)
  Sender: FDA-Public Use
  Company Number: None

PATIENT

DRUGS (4)
  1. LAMOTRIGINE [Suspect]
     Active Substance: LAMOTRIGINE
     Indication: Product used for unknown indication
     Dosage: 150 MG, QD (IN PREGNANCY, INITIALLY DOSE 3X 50 MG. AFTER DELIVERY, 150 MG DAILY DOSE AGAIN)
     Route: 065
  2. LAMOTRIGINE [Suspect]
     Active Substance: LAMOTRIGINE
     Dosage: 700 MG, QD (DURING THE COURSE OF THE DOSE INCREASE TO 700 MG DAILY)
     Route: 065
  3. LAMOTRIGINE [Suspect]
     Active Substance: LAMOTRIGINE
     Dosage: 250 MG, QD (DURING PREGNANCY 100-50-100)
     Route: 065
  4. LAMOTRIGINE [Suspect]
     Active Substance: LAMOTRIGINE
     Dosage: 350 MG, QD (FROM THE 5TH MONTH ONWARDS TO 150-100-100)
     Route: 065

REACTIONS (2)
  - Syndactyly [Unknown]
  - Exposure during pregnancy [Unknown]

NARRATIVE: CASE EVENT DATE: 20200505
